FAERS Safety Report 13833942 (Version 4)
Quarter: 2019Q1

REPORT INFORMATION
  Report Type: Spontaneous
  Country: CA (occurrence: CA)
  Receive Date: 20170804
  Receipt Date: 20190111
  Transmission Date: 20190417
  Serious: Yes (Life-Threatening, Other)
  Sender: FDA-Public Use
  Company Number: CA-PFIZER INC-2017334963

PATIENT
  Age: 36 Year
  Sex: Female

DRUGS (1)
  1. EPINEPHRINE/LIDOCAINE HYDROCHLORIDE [Suspect]
     Active Substance: EPINEPHRINE\LIDOCAINE HYDROCHLORIDE
     Indication: LOCAL ANAESTHESIA
     Dosage: 20 ML OF 2% LIDOCAINE WITH EPINEPHRINE (5 ?G/ML)
     Route: 058

REACTIONS (2)
  - Anaesthetic complication neurological [Recovered/Resolved]
  - Respiratory failure [Recovered/Resolved]
